FAERS Safety Report 11820741 (Version 1)
Quarter: 2015Q4

REPORT INFORMATION
  Report Type: Spontaneous
  Country: US (occurrence: US)
  Receive Date: 20151210
  Receipt Date: 20151210
  Transmission Date: 20160305
  Serious: No
  Sender: FDA-Public Use
  Company Number: US-JNJFOC-20150616111

PATIENT
  Age: 81 Year
  Sex: Male

DRUGS (1)
  1. IMBRUVICA [Suspect]
     Active Substance: IBRUTINIB
     Indication: CHRONIC LYMPHOCYTIC LEUKAEMIA
     Route: 048
     Dates: start: 20150505, end: 20150616

REACTIONS (4)
  - Haemorrhage [Recovered/Resolved]
  - Incorrect dose administered [Recovered/Resolved]
  - Laceration [Unknown]
  - Rash [Unknown]

NARRATIVE: CASE EVENT DATE: 201505
